FAERS Safety Report 5716383-6 (Version None)
Quarter: 2008Q2

REPORT INFORMATION
  Report Type: 
  Country: None (occurrence: None)
  Receive Date: 20080424
  Receipt Date: 20080414
  Transmission Date: 20081010
  Serious: Yes (Hospitalization)
  Sender: FDA-Public Use
  Company Number: PHHO2007NL18077

PATIENT
  Age: 71 Year
  Sex: Female
  Weight: 60.3 kg

DRUGS (3)
  1. RAD OR NEORAL VS MYFORTIC [Suspect]
     Indication: RENAL TRANSPLANT
     Dosage: 720 MG, BID
     Route: 048
     Dates: start: 20060924
  2. NEORAL [Suspect]
     Indication: RENAL TRANSPLANT
     Dosage: 500 MG, QD
     Route: 048
     Dates: start: 20060917
  3. PROGRAFT [Suspect]
     Dosage: 12 MG, QD
     Route: 048
     Dates: start: 20060923

REACTIONS (5)
  - ACUTE CORONARY SYNDROME [None]
  - ARTERY DISSECTION [None]
  - CORONARY ANGIOPLASTY [None]
  - MYOCARDIAL INFARCTION [None]
  - NEPHROPATHY TOXIC [None]
